FAERS Safety Report 5994077-X (Version None)
Quarter: 2008Q4

REPORT INFORMATION
  Report Type: 
  Country: None (occurrence: None)
  Receive Date: 20081212
  Receipt Date: 20081208
  Transmission Date: 20090506
  Serious: Yes (Hospitalization)
  Sender: FDA-Public Use
  Company Number: PHHO2007MX11035

PATIENT
  Sex: Female

DRUGS (5)
  1. DIOVAN [Suspect]
     Indication: HYPERTENSION
     Dosage: 320 MG/DAILY
     Route: 048
     Dates: start: 20070501, end: 20070609
  2. NORVASC [Concomitant]
  3. NEURONTIN [Concomitant]
  4. OMEPRAZOLE [Concomitant]
  5. NUCLEO C.M.P. [Concomitant]

REACTIONS (11)
  - ABASIA [None]
  - BLOOD POTASSIUM DECREASED [None]
  - BLOOD SODIUM DECREASED [None]
  - BONE PAIN [None]
  - DIABETIC NEUROPATHY [None]
  - HYPERGLYCAEMIA [None]
  - HYPERTENSION [None]
  - PAIN [None]
  - POLYURIA [None]
  - SYNOVIAL CYST [None]
  - VOMITING [None]
